FAERS Safety Report 6519614-8 (Version None)
Quarter: 2009Q4

REPORT INFORMATION
  Report Type: 
  Country: None (occurrence: None)
  Receive Date: 20091228
  Receipt Date: 20091221
  Transmission Date: 20100525
  Serious: Yes (Other)
  Sender: FDA-Public Use
  Company Number: US-KINGPHARMUSA00001-K200901518

PATIENT
  Age: 38 Year
  Sex: Female

DRUGS (3)
  1. EMBEDA [Suspect]
     Indication: NECK PAIN
     Dosage: 60 MG, BID
     Route: 048
     Dates: start: 20091111
  2. EMBEDA [Suspect]
     Indication: BACK PAIN
  3. VISTARIL [Concomitant]
     Dosage: UNK

REACTIONS (1)
  - CONVULSION [None]
